FAERS Safety Report 19670319 (Version 1)
Quarter: 2021Q3

REPORT INFORMATION
  Report Type: Spontaneous
  Country: US (occurrence: US)
  Receive Date: 20210806
  Receipt Date: 20210806
  Transmission Date: 20211014
  Serious: Yes (Hospitalization)
  Sender: FDA-Public Use
  Company Number: US-SAOL THERAPEUTICS-2020SAO00389

PATIENT
  Age: 22 Year
  Sex: Male
  Weight: 54.42 kg

DRUGS (45)
  1. LIORESAL [Suspect]
     Active Substance: BACLOFEN
     Dosage: 776 ?G, \DAY (AS OF 23?AUG?2020)
     Route: 037
     Dates: end: 20200824
  2. LIORESAL [Suspect]
     Active Substance: BACLOFEN
     Dosage: 572.4 ?G, \DAY
     Route: 037
     Dates: start: 20200825, end: 20200825
  3. GABLOFEN [Suspect]
     Active Substance: BACLOFEN
     Dosage: 572.4 ?G, \DAY
     Dates: start: 20200825, end: 20200825
  4. GABLOFEN [Suspect]
     Active Substance: BACLOFEN
     Dosage: 96.1 ?G, \DAY
     Route: 037
     Dates: start: 20200829, end: 20200830
  5. GABLOFEN [Suspect]
     Active Substance: BACLOFEN
     Dosage: PLAN IS TO DECREASE DOSE IN PREPARATION FOR EVENTUAL EXPLANT OF ENTIRE CATHETER AND PUMP
     Route: 037
     Dates: start: 2020, end: 20200830
  6. DULCOLAX NOS [Concomitant]
     Active Substance: BISACODYL OR DOCUSATE SODIUM
     Dosage: 10 MG, 1X/DAY
     Route: 054
  7. DESRYL [Concomitant]
     Dosage: 50 MG, 1X/DAY
     Route: 048
  8. MULTIVITAMIN [Concomitant]
     Active Substance: VITAMINS
     Dosage: 1 TABLETS, 1X/DAY
     Route: 048
  9. SENNA [Concomitant]
     Active Substance: SENNA LEAF\SENNOSIDES\SENNOSIDES A AND B
     Dosage: 2 TABLETS, 2X/DAY
     Route: 048
  10. LIORESAL [Suspect]
     Active Substance: BACLOFEN
     Dosage: 195 ?G, \DAY
     Route: 037
     Dates: start: 20200828, end: 20200829
  11. LIORESAL [Concomitant]
     Active Substance: BACLOFEN
     Dosage: 15 MG, 3X/DAY ON 25?AUG?2020 AT 1416 HOURS
     Route: 048
  12. RELISTOR [Concomitant]
     Active Substance: METHYLNALTREXONE BROMIDE
     Dosage: 12 MG, EVERY 48 HOURS EVERY OTHER DAY AS NEEDED
     Route: 058
  13. LIORESAL [Suspect]
     Active Substance: BACLOFEN
     Dosage: 437.9 ?G, \DAY (ALSO REPORTED AS 438 ?G/DAY)
     Dates: start: 20200826, end: 20200827
  14. GABLOFEN [Suspect]
     Active Substance: BACLOFEN
     Dosage: 776 ?G, \DAY (AS OF 23?AUG?2020)
     Route: 037
     Dates: end: 20200824
  15. GABLOFEN [Suspect]
     Active Substance: BACLOFEN
     Dosage: 336 ?G, \DAY
     Route: 037
     Dates: start: 20200827, end: 20200828
  16. PROVENTIL [Concomitant]
     Active Substance: ALBUTEROL
     Dosage: 1?2 PUFFS EVERY 4 HOURS AS NEEDED
  17. MOVANTIK [Concomitant]
     Active Substance: NALOXEGOL OXALATE
     Dosage: 25 MG, 1X/DAY AS NEEDED
     Route: 048
  18. MILK OF MAGNESIA [Concomitant]
     Active Substance: MAGNESIUM HYDROXIDE
     Dosage: 30 ML, 4X/DAY EVERY 6 HOURS AS NEEDED
  19. LEXAPRO [Concomitant]
     Active Substance: ESCITALOPRAM OXALATE
     Dosage: 10 MG, 1X/DAY EVERY MORNING
     Route: 048
  20. LIORESAL [Suspect]
     Active Substance: BACLOFEN
     Dosage: 695 ?G, \DAY
     Route: 037
     Dates: start: 20190607
  21. GABLOFEN [Suspect]
     Active Substance: BACLOFEN
     Dosage: 695 ?G, \DAY
     Route: 037
     Dates: start: 20190607, end: 2019
  22. FLEXERIL [Concomitant]
     Active Substance: CYCLOBENZAPRINE HYDROCHLORIDE
     Dosage: 5 MG, 3X/DAY AS NEEDED
     Route: 048
  23. LIORESAL [Suspect]
     Active Substance: BACLOFEN
     Indication: MUSCLE SPASTICITY
     Dosage: 685 ?G, \DAY
     Route: 037
     Dates: end: 20190607
  24. LIORESAL [Suspect]
     Active Substance: BACLOFEN
     Dosage: 96.1 ?G, \DAY
     Route: 037
     Dates: start: 20200829, end: 20200830
  25. GABLOFEN [Suspect]
     Active Substance: BACLOFEN
     Dosage: 437.9 ?G, \DAY (ALSO REPORTED AS 438 ?G/DAY)
     Route: 037
     Dates: start: 20200826, end: 20200827
  26. LIORESAL [Suspect]
     Active Substance: BACLOFEN
     Dosage: 600 ?G, \DAY
     Route: 037
     Dates: start: 20191031
  27. LIORESAL [Suspect]
     Active Substance: BACLOFEN
     Dosage: PLAN IS TO DECREASE DOSE IN PREPARATION FOR EVENTUAL EXPLANT OF ENTIRE CATHETER AND PUMP
     Route: 037
     Dates: start: 202008, end: 20200830
  28. LIORESAL [Concomitant]
     Active Substance: BACLOFEN
     Dosage: TAKE 10?20 MG EVERY 4 HOURS AS NEEDED
     Route: 048
  29. LIORESAL [Suspect]
     Active Substance: BACLOFEN
     Dosage: 497.4 ?G, \DAY
     Route: 037
     Dates: start: 20200825, end: 20200826
  30. LIORESAL [Suspect]
     Active Substance: BACLOFEN
     Dosage: 336 ?G, \DAY
     Route: 037
     Dates: start: 20200827, end: 20200828
  31. GABLOFEN [Suspect]
     Active Substance: BACLOFEN
     Indication: MUSCLE SPASTICITY
     Dosage: 685 ?G, \DAY
     Route: 037
     Dates: end: 20190607
  32. GABLOFEN [Suspect]
     Active Substance: BACLOFEN
     Dosage: 600 ?G, \DAY
     Route: 037
     Dates: start: 20191031
  33. GABLOFEN [Suspect]
     Active Substance: BACLOFEN
     Dosage: 649.9 ?G, \DAY (ALSO REPORTED AS 649.6 AND 650 ?G/DAY)
     Route: 037
     Dates: start: 20200824, end: 20200825
  34. GABLOFEN [Suspect]
     Active Substance: BACLOFEN
     Dosage: 497.4 ?G, \DAY
     Route: 037
     Dates: start: 20200825, end: 20200826
  35. OXYCODONE [Concomitant]
     Active Substance: OXYCODONE
  36. TYLENOL [Concomitant]
     Active Substance: ACETAMINOPHEN
     Dosage: 650 MG, 6X/DAY?EVERY 4 HOURS AS NEEDED
  37. TRANXENE [Concomitant]
     Active Substance: CLORAZEPATE DIPOTASSIUM
     Dosage: 3.75 MG, 6X/DAY?EVERY 4 HOURS AS NEEDED
     Route: 048
  38. LIORESAL [Concomitant]
     Active Substance: BACLOFEN
     Dosage: 20 MG, 6X/DAY
     Route: 048
  39. LISINOPRIL. [Concomitant]
     Active Substance: LISINOPRIL
     Dosage: 20 MG, 1X/DAY
     Route: 048
  40. PROVENTIL NEBULIZER SOLUTION [Concomitant]
     Dosage: 2.5 MG, 6X/DAY EVERY 4 HOURS AS NEEDED
  41. LIORESAL [Suspect]
     Active Substance: BACLOFEN
     Dosage: 649.9 ?G, \DAY (ALSO REPORTED AS 649.6 AND 650 ?G/DAY)
     Route: 037
     Dates: start: 20200824, end: 202008
  42. GABLOFEN [Suspect]
     Active Substance: BACLOFEN
     Dosage: 195.9 ?G, \DAY
     Route: 037
     Dates: start: 20200828, end: 20200829
  43. LIORESAL [Concomitant]
     Active Substance: BACLOFEN
     Dosage: UNK
  44. MIRALAX [Concomitant]
     Active Substance: POLYETHYLENE GLYCOL 3350
     Dosage: 17 G, 1X/DAY AT NIGHT AS NEEDED
     Route: 048
  45. ATIVAN [Concomitant]
     Active Substance: LORAZEPAM
     Dosage: 0.5 MG, 2X/DAY EVERY 12 HOURS AS NEEDED

REACTIONS (16)
  - Hyperhidrosis [Recovered/Resolved]
  - Discomfort [Recovered/Resolved]
  - Wheezing [Unknown]
  - Sleep apnoea syndrome [Recovered/Resolved]
  - Muscle spasms [Recovered/Resolved]
  - Muscle spasticity [Unknown]
  - Device issue [Recovered/Resolved]
  - Decubitus ulcer [Unknown]
  - Implant site infection [Recovered/Resolved]
  - Staphylococcus test positive [Recovered/Resolved]
  - Therapeutic product effect incomplete [Recovered/Resolved]
  - Gait disturbance [Unknown]
  - Implant site dehiscence [Recovered/Resolved]
  - Agitation [Recovered/Resolved]
  - Drug withdrawal syndrome [Recovered/Resolved]
  - Abdominal discomfort [Recovered/Resolved]

NARRATIVE: CASE EVENT DATE: 2017
